FAERS Safety Report 9280151 (Version 2)
Quarter: 2013Q2

REPORT INFORMATION
  Report Type: Spontaneous
  Country: JP (occurrence: JP)
  Receive Date: 20130509
  Receipt Date: 20130603
  Transmission Date: 20140414
  Serious: Yes (Death)
  Sender: FDA-Public Use
  Company Number: JP-BAYER-2013-057431

PATIENT
  Age: 82 Year
  Sex: Male
  Weight: 66 kg

DRUGS (18)
  1. NEXAVAR [Suspect]
     Indication: HEPATOCELLULAR CARCINOMA
     Dosage: 200 MG, BID
     Route: 048
     Dates: start: 20130219, end: 20130425
  2. LYRICA [Concomitant]
     Indication: LUMBAR SPINAL STENOSIS
     Dosage: DAILY DOSE 150 MG
     Route: 048
     Dates: start: 20130219
  3. CELECOXIB [Concomitant]
     Indication: LUMBAR SPINAL STENOSIS
     Dosage: DAILY DOSE 400 MG
     Route: 048
     Dates: start: 20130219
  4. NEXIUM [Concomitant]
     Indication: LUMBAR SPINAL STENOSIS
     Dosage: DAILY DOSE 20 MG
     Route: 048
     Dates: start: 20130219
  5. ENALAPRIL [Concomitant]
     Indication: CARDIAC FAILURE CHRONIC
     Dosage: DAILY DOSE 2.5 MG
     Route: 048
  6. ENALAPRIL [Concomitant]
     Indication: ANGINA PECTORIS
  7. LUPRAC [Concomitant]
     Indication: CARDIAC FAILURE CHRONIC
     Dosage: DAILY DOSE 8 MG
     Route: 048
  8. LUPRAC [Concomitant]
     Indication: ANGINA PECTORIS
  9. ACETYLSALICYLIC ACID({=100 MG) [Concomitant]
     Indication: CARDIAC FAILURE CHRONIC
     Dosage: DAILY DOSE 100 MG
     Route: 048
  10. ACETYLSALICYLIC ACID({=100 MG) [Concomitant]
     Indication: ANGINA PECTORIS
  11. ARTIST [Concomitant]
     Indication: CARDIAC FAILURE CHRONIC
     Dosage: DAILY DOSE 1.25 MG
     Route: 048
  12. ARTIST [Concomitant]
     Indication: ANGINA PECTORIS
  13. ALTAT [Concomitant]
     Indication: CARDIAC FAILURE CHRONIC
     Dosage: DAILY DOSE 75 MG
     Route: 048
  14. ALTAT [Concomitant]
     Indication: ANGINA PECTORIS
  15. URSO [Concomitant]
     Indication: HEPATIC CIRRHOSIS
     Dosage: DAILY DOSE 600 MG
     Route: 048
  16. GLUCONSAN K [Concomitant]
     Dosage: DAILY DOSE 15 MEQ
     Route: 048
  17. WARFARIN [Concomitant]
     Indication: PULMONARY EMBOLISM
     Dosage: DAILY DOSE 1.75 MG
     Route: 048
  18. WARFARIN [Concomitant]
     Indication: ATRIAL FIBRILLATION

REACTIONS (1)
  - Death [Fatal]
